FAERS Safety Report 24574634 (Version 1)
Quarter: 2024Q4

REPORT INFORMATION
  Report Type: Report from Study
  Country: DE (occurrence: DE)
  Receive Date: 20241104
  Receipt Date: 20241104
  Transmission Date: 20250115
  Serious: Yes (Hospitalization)
  Sender: ROCHE
  Company Number: DE-ROCHE-10000119473

PATIENT
  Age: 36 Year
  Sex: Female
  Weight: 100 kg

DRUGS (4)
  1. OCREVUS [Suspect]
     Active Substance: OCRELIZUMAB
     Indication: Multiple sclerosis
     Route: 042
     Dates: start: 20240715
  2. CHOLECALCIFEROL [Concomitant]
     Active Substance: CHOLECALCIFEROL
     Indication: Vitamin D deficiency
     Dosage: DOSE: 4000 IE
     Route: 048
     Dates: start: 20220915
  3. FISH OIL [Concomitant]
     Active Substance: FISH OIL
     Route: 048
  4. PROPIONIC ACID [Concomitant]
     Active Substance: PROPIONIC ACID
     Route: 048
     Dates: start: 20230815, end: 20240815

REACTIONS (1)
  - Herpes zoster [Recovered/Resolved with Sequelae]

NARRATIVE: CASE EVENT DATE: 20241006
